FAERS Safety Report 7151419-X (Version None)
Quarter: 2010Q4

REPORT INFORMATION
  Report Type: 
  Country: None (occurrence: None)
  Receive Date: 20101123
  Receipt Date: 20101111
  Transmission Date: 20110411
  Serious: Yes (Other)
  Sender: FDA-Public Use
  Company Number: 2010SP059965

PATIENT
  Age: 37 Year
  Sex: Female

DRUGS (2)
  1. DESLORATADINE [Suspect]
     Indication: URTICARIA
     Dosage: 5 MG; QD; PO, 5 MG; QD; PO
     Route: 048
     Dates: start: 20101101, end: 20101108
  2. DESLORATADINE [Suspect]
     Indication: URTICARIA
     Dosage: 5 MG; QD; PO, 5 MG; QD; PO
     Route: 048
     Dates: start: 20101109, end: 20101110

REACTIONS (6)
  - ARRHYTHMIA [None]
  - INSOMNIA [None]
  - NAUSEA [None]
  - PANIC REACTION [None]
  - TREATMENT NONCOMPLIANCE [None]
  - VOMITING [None]
